FAERS Safety Report 12699578 (Version 2)
Quarter: 2016Q3

REPORT INFORMATION
  Report Type: Spontaneous
  Country: US (occurrence: US)
  Receive Date: 20160830
  Receipt Date: 20160923
  Transmission Date: 20161109
  Serious: Yes (Hospitalization)
  Sender: FDA-Public Use
  Company Number: US-SHENZHEN TECHDOW PHARMACEUTICAL CO. LTD-US-2016TEC0000027

PATIENT
  Age: 49 Year
  Sex: Female

DRUGS (1)
  1. HEPARIN SODIUM INJECTION USP, PRESERVATIVE FREE [Suspect]
     Active Substance: HEPARIN SODIUM
     Indication: PRODUCT USED FOR UNKNOWN INDICATION
     Dosage: UNK

REACTIONS (11)
  - Lymphadenopathy mediastinal [Unknown]
  - Gastrointestinal haemorrhage [Unknown]
  - Superior vena cava stenosis [Unknown]
  - Cerebral infarction [Unknown]
  - Necrosis [Unknown]
  - Heparin-induced thrombocytopenia [Unknown]
  - Peripheral ischaemia [Unknown]
  - Hypercoagulation [Unknown]
  - Atrial fibrillation [Unknown]
  - Pericardial effusion [Unknown]
  - Pulmonary embolism [Unknown]
